FAERS Safety Report 5517977-3 (Version None)
Quarter: 2007Q4

REPORT INFORMATION
  Report Type: 
  Country: None (occurrence: None)
  Receive Date: 20071114
  Receipt Date: 20071114
  Transmission Date: 20080405
  Serious: Yes (Other)
  Sender: FDA-Public Use
  Company Number: None

PATIENT
  Age: 61 Year
  Sex: Female
  Weight: 43.0917 kg

DRUGS (1)
  1. METHOCARBAMOL [Suspect]
     Indication: BACK PAIN
     Dosage: 500MG THREE TIMES DAILY PO
     Route: 048
     Dates: start: 20071107, end: 20071110

REACTIONS (5)
  - DYSPNOEA [None]
  - FEELING COLD [None]
  - NAUSEA [None]
  - PALPITATIONS [None]
  - VOMITING [None]
